FAERS Safety Report 23100505 (Version 1)
Quarter: 2023Q4

REPORT INFORMATION
  Report Type: Spontaneous
  Country: JP (occurrence: JP)
  Receive Date: 20231024
  Receipt Date: 20231024
  Transmission Date: 20240110
  Serious: Yes (Life-Threatening)
  Sender: FDA-Public Use
  Company Number: JP-PFIZER INC-PV202300171487

PATIENT
  Age: 71 Year
  Sex: Male
  Weight: 60.6 kg

DRUGS (6)
  1. DEXMEDETOMIDINE HYDROCHLORIDE [Suspect]
     Active Substance: DEXMEDETOMIDINE HYDROCHLORIDE
     Indication: Sedation
     Dosage: 0.2 UG/KG-1/HR-1
  2. DEXMEDETOMIDINE HYDROCHLORIDE [Suspect]
     Active Substance: DEXMEDETOMIDINE HYDROCHLORIDE
     Dosage: 0.4 UG/KG-1/HR-1
  3. PROPOFOL [Concomitant]
     Active Substance: PROPOFOL
     Indication: Analgesic therapy
     Dosage: 120 MG/HR-1
  4. PROPOFOL [Concomitant]
     Active Substance: PROPOFOL
     Indication: Sedation
     Dosage: 150 MG/HR-1
  5. FENTANYL [Concomitant]
     Active Substance: FENTANYL\FENTANYL CITRATE
     Dosage: 40 UG/HR-1
  6. FENTANYL [Concomitant]
     Active Substance: FENTANYL\FENTANYL CITRATE
     Dosage: 60 UG/HR-1

REACTIONS (3)
  - Cardiac arrest [Unknown]
  - Bradycardia [Unknown]
  - Atrioventricular block second degree [Unknown]
